FAERS Safety Report 8876942 (Version 1)
Quarter: 2012Q4

REPORT INFORMATION
  Report Type: 
  Country: PT (occurrence: PT)
  Receive Date: 20121030
  Receipt Date: 20121030
  Transmission Date: 20130627
  Serious: Yes (Death, Other)
  Sender: FDA-Public Use
  Company Number: PT-ARROW-2012-18294

PATIENT
  Age: 37 Year
  Sex: Female

DRUGS (3)
  1. OMEPRAZOLE (UNKNOWN) [Suspect]
     Indication: PHARYNGITIS
     Dosage: 20 mg, unknown
     Route: 048
  2. PANTOPRAZOLE SODIUM [Suspect]
     Indication: ALLERGY TEST
     Dosage: 0.04 mg/ml
     Route: 023
  3. IBUPROFEN [Concomitant]
     Indication: PHARYNGITIS
     Dosage: 600 mg, unknown
     Route: 048

REACTIONS (3)
  - Anaphylactic reaction [Recovered/Resolved]
  - Allergy test positive [Unknown]
  - Self-medication [None]
